FAERS Safety Report 24534684 (Version 1)
Quarter: 2024Q4

REPORT INFORMATION
  Report Type: Report from Study
  Country: CA (occurrence: CA)
  Receive Date: 20241022
  Receipt Date: 20241022
  Transmission Date: 20250115
  Serious: Yes (Other)
  Sender: JAZZ
  Company Number: CA-JAZZ PHARMACEUTICALS-2024-CA-014394

PATIENT
  Sex: Female

DRUGS (6)
  1. XYREM [Suspect]
     Active Substance: SODIUM OXYBATE
     Indication: Cataplexy
     Dosage: 4.5 GRAM
     Route: 048
     Dates: start: 20090805, end: 2009
  2. XYREM [Suspect]
     Active Substance: SODIUM OXYBATE
     Dosage: 6 GRAM
     Route: 048
     Dates: start: 20090827, end: 2009
  3. XYREM [Suspect]
     Active Substance: SODIUM OXYBATE
     Dosage: 7.5 GRAM
     Route: 048
     Dates: start: 20090916, end: 2010
  4. XYREM [Suspect]
     Active Substance: SODIUM OXYBATE
     Dosage: 9 GRAM
     Route: 048
     Dates: start: 20100120, end: 2013
  5. XYREM [Suspect]
     Active Substance: SODIUM OXYBATE
     Dosage: 11.25 GRAM
     Route: 048
     Dates: start: 2013
  6. XYREM [Suspect]
     Active Substance: SODIUM OXYBATE
     Dosage: 11.25 GRAM
     Route: 048

REACTIONS (1)
  - Gastrointestinal stromal tumour [Unknown]

NARRATIVE: CASE EVENT DATE: 20210101
